FAERS Safety Report 7425833-9 (Version None)
Quarter: 2011Q2

REPORT INFORMATION
  Report Type: 
  Country: None (occurrence: None)
  Receive Date: 20110420
  Receipt Date: 20110418
  Transmission Date: 20111010
  Serious: Yes (Hospitalization)
  Sender: FDA-Public Use
  Company Number: DE-BAYER-2011-033403

PATIENT
  Age: 76 Year
  Sex: Male

DRUGS (15)
  1. OMEPRAZOLE [Concomitant]
     Dosage: 40 MG, 1-0-0-0
  2. LEVOTHYROXINE SODIUM [Concomitant]
     Dosage: 150 MG, 1-0-0-0
  3. ALLO-300 [Concomitant]
     Dosage: 0.5-0-0-0
  4. INNOHEP [Concomitant]
     Indication: THROMBOSIS PROPHYLAXIS
  5. TORASEMID [Concomitant]
     Dosage: 10 MG, 0.5-0-0
  6. RAMIPRIL [Concomitant]
     Dosage: 5/25 MG, 1-0-0-0
  7. SYMBICORT [Concomitant]
     Dosage: 160/4.5 MG, 1-0-1-0
  8. SUNITINIB [Suspect]
     Indication: RENAL CELL CARCINOMA
     Dosage: UNK
  9. AMIODARONE HCL [Concomitant]
     Dosage: 200 MG, 1-0-0.5-0
  10. AMLODIPINE [Concomitant]
     Dosage: 5 MG, 0-0-1-0
  11. EMSELEX [Concomitant]
     Dosage: 7.5 MG, 2-0-0-0
  12. SORAFENIB (RAF KINASE INHIBITOR) [Suspect]
     Indication: RENAL CELL CARCINOMA
     Dosage: UNK
     Dates: start: 20110328, end: 20110408
  13. SIMVASTATIN [Concomitant]
     Dosage: 0-0-1-0
  14. TRAMADOL [Concomitant]
     Indication: PAIN
     Dosage: 30-30-30-0 PRN
  15. ASPIRIN [Concomitant]
     Dosage: 300, 1-0-0

REACTIONS (5)
  - GENERAL PHYSICAL HEALTH DETERIORATION [None]
  - VOMITING [None]
  - PNEUMONIA [None]
  - DIARRHOEA [None]
  - DEHYDRATION [None]
